FAERS Safety Report 25882117 (Version 2)
Quarter: 2025Q4

REPORT INFORMATION
  Report Type: Spontaneous
  Country: EU (occurrence: EU)
  Receive Date: 20251006
  Receipt Date: 20251021
  Transmission Date: 20260117
  Serious: Yes (Other)
  Sender: PHARMOBEDIENT CONSULTING, LLC
  Company Number: EU-Pharmobedient-000273

PATIENT
  Age: 2 Year
  Sex: Male

DRUGS (1)
  1. MOXIFLOXACIN [Suspect]
     Active Substance: MOXIFLOXACIN
     Indication: Product used for unknown indication
     Dosage: 5 MG/ML, 2 DROPS IN EACH NOSTRIL, FOR 10 DAYS
     Route: 045
     Dates: start: 202501, end: 202501

REACTIONS (3)
  - Insomnia [Recovered/Resolved]
  - Off label use [Unknown]
  - Psychotic disorder [Recovered/Resolved]

NARRATIVE: CASE EVENT DATE: 20250101
